FAERS Safety Report 13131066 (Version 3)
Quarter: 2017Q3

REPORT INFORMATION
  Report Type: Spontaneous
  Country: US (occurrence: US)
  Receive Date: 20170119
  Receipt Date: 20170808
  Transmission Date: 20171127
  Serious: Yes (Hospitalization, Other)
  Sender: FDA-Public Use
  Company Number: US-JNJFOC-20170116669

PATIENT
  Age: 82 Year
  Sex: Male

DRUGS (1)
  1. IMBRUVICA [Suspect]
     Active Substance: IBRUTINIB
     Indication: CHRONIC LYMPHOCYTIC LEUKAEMIA
     Route: 048
     Dates: start: 20151213

REACTIONS (4)
  - Fluid overload [Recovering/Resolving]
  - Pneumonia [Recovering/Resolving]
  - Anaemia [Recovering/Resolving]
  - Disease progression [Unknown]

NARRATIVE: CASE EVENT DATE: 20170113
